FAERS Safety Report 18973630 (Version 1)
Quarter: 2021Q1

REPORT INFORMATION
  Report Type: Spontaneous
  Country: US (occurrence: US)
  Receive Date: 20210305
  Receipt Date: 20210305
  Transmission Date: 20210420
  Serious: Yes (Other)
  Sender: FDA-Public Use
  Company Number: US-TEVA-2021-US-1886161

PATIENT
  Age: 22 Year
  Sex: Female
  Weight: 59 kg

DRUGS (5)
  1. AUSTEDO [Suspect]
     Active Substance: DEUTETRABENAZINE
     Indication: TARDIVE DYSKINESIA
     Dosage: 48 MILLIGRAM DAILY;
     Route: 048
     Dates: start: 2018
  2. TYLENOL 325 MG TABLET [Concomitant]
  3. LORATADINE?D 10MG?240MG TAB ER 24H [Concomitant]
     Dosage: 10MG?240MG TAB ER 24H
  4. MELATONIN 10 MG CAPSULE [Concomitant]
  5. IBUPROFEN 200 MG CAPSULE [Concomitant]

REACTIONS (1)
  - Suicidal ideation [Not Recovered/Not Resolved]

NARRATIVE: CASE EVENT DATE: 20210224
